FAERS Safety Report 10558346 (Version 1)
Quarter: 2014Q4

REPORT INFORMATION
  Report Type: Spontaneous
  Country: FR (occurrence: None)
  Receive Date: 20141029
  Receipt Date: 20141029
  Transmission Date: 20150529
  Serious: No
  Sender: FDA-Public Use
  Company Number: B0913321A

PATIENT
  Age: 48 Year
  Sex: Male

DRUGS (4)
  1. TRUVADA (EMCITABINE + TENOFOVIR DISOPROXIL FUMARATE) [Concomitant]
  2. KIVEXA [Suspect]
     Active Substance: ABACAVIR SULFATE\LAMIVUDINE
     Indication: HIV INFECTION
     Route: 048
     Dates: start: 20130316, end: 20130422
  3. NORVIR [Suspect]
     Active Substance: RITONAVIR
     Indication: HIV INFECTION
     Route: 048
     Dates: start: 20090429
  4. REYATAZ [Suspect]
     Active Substance: ATAZANAVIR SULFATE
     Indication: HIV INFECTION
     Route: 048
     Dates: start: 20090429

REACTIONS (3)
  - Gastrointestinal disorder [None]
  - Insomnia [None]
  - Irritability [None]

NARRATIVE: CASE EVENT DATE: 201304
